FAERS Safety Report 6762295-9 (Version None)
Quarter: 2010Q2

REPORT INFORMATION
  Report Type: 
  Country: None (occurrence: None)
  Receive Date: 20100609
  Receipt Date: 20100602
  Transmission Date: 20101027
  Serious: Yes (Other)
  Sender: FDA-Public Use
  Company Number: US-JNJFOC-20100406480

PATIENT
  Sex: Male
  Weight: 104.33 kg

DRUGS (2)
  1. MOTRIN IB [Suspect]
     Indication: ARTHRALGIA
     Dosage: 1600 MG (8 PILLS) PER DAY
     Route: 048
  2. MOTRIN IB [Suspect]
     Indication: PYREXIA
     Dosage: 1600 MG (8 PILLS) PER DAY
     Route: 048

REACTIONS (3)
  - CARDIAC FAILURE CONGESTIVE [None]
  - OEDEMA PERIPHERAL [None]
  - SYSTEMIC LUPUS ERYTHEMATOSUS [None]
